FAERS Safety Report 4386391-9 (Version None)
Quarter: 2004Q2

REPORT INFORMATION
  Report Type: 
  Country: None (occurrence: None)
  Receive Date: 20040623
  Receipt Date: 20040611
  Transmission Date: 20050107
  Serious: Yes (Other)
  Sender: FDA-Public Use
  Company Number: LIT-04-0017-ADVS

PATIENT

DRUGS (1)
  1. ADVANTAGE-S [Suspect]

REACTIONS (1)
  - UTERINE DISORDER [None]
